FAERS Safety Report 12651000 (Version 1)
Quarter: 2016Q3

REPORT INFORMATION
  Report Type: Spontaneous
  Country: US (occurrence: US)
  Receive Date: 20160815
  Receipt Date: 20160815
  Transmission Date: 20161109
  Serious: No
  Sender: FDA-Public Use
  Company Number: US-JAZZ-2016-US-005194

PATIENT
  Sex: Female

DRUGS (22)
  1. VITAMIN D [Concomitant]
     Active Substance: CHOLECALCIFEROL
  2. GLUCOSAMINE COMPLEX-MSM [Concomitant]
  3. FLONASE ALLERGY RLF [Concomitant]
  4. XYREM [Suspect]
     Active Substance: SODIUM OXYBATE
     Dosage: 4.5 G, BID
     Route: 048
     Dates: start: 2011, end: 2012
  5. HYDROCORTISONE. [Concomitant]
     Active Substance: HYDROCORTISONE
  6. PROTANDIM [Concomitant]
     Active Substance: DIETARY SUPPLEMENT
  7. PROVIGIL [Concomitant]
     Active Substance: MODAFINIL
  8. XYREM [Suspect]
     Active Substance: SODIUM OXYBATE
     Indication: NARCOLEPSY
     Dosage: 2.25 G, BID
     Route: 048
     Dates: start: 201110, end: 201111
  9. XYREM [Suspect]
     Active Substance: SODIUM OXYBATE
     Dosage: DOSE ADJUSTMENTS
     Route: 048
     Dates: start: 201602, end: 201602
  10. PROBIOTIC ACIDOPHILUS [Concomitant]
     Active Substance: LACTOBACILLUS ACIDOPHILUS
  11. BIOTIN [Concomitant]
     Active Substance: BIOTIN
  12. IBUPROFEN. [Concomitant]
     Active Substance: IBUPROFEN
  13. SINGULAIR [Concomitant]
     Active Substance: MONTELUKAST SODIUM
  14. Q-10 CO-ENZYME [Concomitant]
  15. FISH OIL EC [Concomitant]
  16. TRETINOIN. [Concomitant]
     Active Substance: TRETINOIN
  17. BACTROBAN [Concomitant]
     Active Substance: MUPIROCIN\MUPIROCIN CALCIUM
  18. XYREM [Suspect]
     Active Substance: SODIUM OXYBATE
     Indication: CATAPLEXY
     Dosage: DOSE ADJUSTMENTS
     Route: 048
     Dates: start: 2011, end: 2011
  19. XYREM [Suspect]
     Active Substance: SODIUM OXYBATE
     Dosage: 2.25 G, BID
     Route: 048
     Dates: start: 201601, end: 201602
  20. BREWER^S YEAST [Concomitant]
  21. XYREM [Suspect]
     Active Substance: SODIUM OXYBATE
     Dosage: 4.5 G, BID
     Route: 048
     Dates: start: 201602
  22. BILBERRY [Concomitant]
     Active Substance: BILBERRY

REACTIONS (2)
  - Feeling abnormal [Not Recovered/Not Resolved]
  - Headache [Not Recovered/Not Resolved]
